FAERS Safety Report 6516888-4 (Version None)
Quarter: 2009Q4

REPORT INFORMATION
  Report Type: 
  Country: None (occurrence: None)
  Receive Date: 20091223
  Receipt Date: 20091209
  Transmission Date: 20100525
  Serious: Yes (Other)
  Sender: FDA-Public Use
  Company Number: US-PFIZER INC-2009295067

PATIENT
  Sex: Female

DRUGS (2)
  1. GEODON [Suspect]
     Dosage: 40 MG, 2X/DAY
  2. SYNTHROID [Suspect]

REACTIONS (2)
  - ARRHYTHMIA [None]
  - PALPITATIONS [None]
